FAERS Safety Report 4565186-7 (Version None)
Quarter: 2005Q1

REPORT INFORMATION
  Report Type: 
  Country: None (occurrence: None)
  Receive Date: 20050127
  Receipt Date: 20050127
  Transmission Date: 20050727
  Serious: No
  Sender: FDA-Public Use
  Company Number: None

PATIENT
  Age: 61 Year
  Sex: Male
  Weight: 95.2554 kg

DRUGS (1)
  1. VANCOMYCIN [Suspect]
     Indication: SEPSIS
     Dosage: 1 G IV Q 12 HRS
     Route: 042
     Dates: start: 20050105, end: 20050125

REACTIONS (1)
  - RASH GENERALISED [None]
